FAERS Safety Report 25867040 (Version 1)
Quarter: 2025Q4

REPORT INFORMATION
  Report Type: Spontaneous
  Country: EU (occurrence: EU)
  Receive Date: 20251001
  Receipt Date: 20251001
  Transmission Date: 20260118
  Serious: Yes (Life-Threatening, Hospitalization, Other)
  Sender: CELLTRION
  Company Number: None

PATIENT

DRUGS (4)
  1. RITUXIMAB [Suspect]
     Active Substance: RITUXIMAB
     Indication: Central nervous system lymphoma
     Dosage: 734 MILLIGRAM, CYCLICAL
     Route: 042
     Dates: start: 20250822, end: 20250822
  2. METHOTREXATE [Suspect]
     Active Substance: METHOTREXATE
     Indication: Central nervous system lymphoma
     Dosage: 6853 MILLIGRAM, CYCLICAL
     Route: 042
     Dates: start: 20250823, end: 20250823
  3. CYTARABINE [Suspect]
     Active Substance: CYTARABINE
     Indication: Central nervous system lymphoma
     Dosage: 3916 MILLIGRAM, EVERY 12 HRS
     Route: 042
     Dates: start: 20250824, end: 20250825
  4. THIOTEPA [Suspect]
     Active Substance: THIOTEPA
     Indication: Central nervous system lymphoma
     Dosage: 59 MILLIGRAM, CYCLICAL
     Route: 042
     Dates: start: 20250826, end: 20250826

REACTIONS (1)
  - Agranulocytosis [Recovered/Resolved]

NARRATIVE: CASE EVENT DATE: 20250903
